FAERS Safety Report 6476701-0 (Version None)
Quarter: 2009Q4

REPORT INFORMATION
  Report Type: 
  Country: None (occurrence: None)
  Receive Date: 20091207
  Receipt Date: 20091127
  Transmission Date: 20100525
  Serious: Yes (Other)
  Sender: FDA-Public Use
  Company Number: US-ROCHE-670287

PATIENT
  Sex: Female

DRUGS (7)
  1. TAMIFLU [Suspect]
     Indication: H1N1 INFLUENZA
     Route: 048
     Dates: start: 20091120, end: 20091122
  2. CLONIDINE [Concomitant]
     Indication: BLOOD PRESSURE
     Dosage: START DATE REPORTED AS : MAINTENANCE
     Route: 048
  3. HYDROCHLOROTHIAZIDE [Concomitant]
     Indication: BLOOD PRESSURE
     Dosage: START DATE REPORTED AS : MAINTENANCE
     Route: 048
  4. LISINOPRIL [Concomitant]
     Indication: BLOOD PRESSURE
     Dosage: START DATE REPORTED AS : MAINTENANCE
     Route: 048
  5. DILTIAZEM [Concomitant]
     Indication: BLOOD PRESSURE
     Dosage: START DATE REPORTED AS : MAINTENANCE
     Route: 048
  6. WARFARIN SODIUM [Concomitant]
     Indication: ANTICOAGULANT THERAPY
     Dosage: START DATE REPORTED AS : MAINTENANCE
     Route: 048
  7. FUROSEMIDE [Concomitant]
     Dosage: FREQUENCY: DAILY ONLY AS NEEDED
     Route: 048

REACTIONS (2)
  - AGITATION [None]
  - SLEEP TERROR [None]
